FAERS Safety Report 11616627 (Version 6)
Quarter: 2016Q2

REPORT INFORMATION
  Report Type: Report from Study
  Country: JP (occurrence: JP)
  Receive Date: 20151009
  Receipt Date: 20160523
  Transmission Date: 20160815
  Serious: Yes (Death, Hospitalization)
  Sender: FDA-Public Use
  Company Number: JP-EISAI MEDICAL RESEARCH-EC-2015-011014

PATIENT
  Age: 38 Year
  Sex: Female
  Weight: 41 kg

DRUGS (8)
  1. LOXONIN [Concomitant]
     Active Substance: LOXOPROFEN SODIUM
  2. MUCOSTA [Concomitant]
     Active Substance: REBAMIPIDE
  3. HALAVEN [Suspect]
     Active Substance: ERIBULIN MESYLATE
     Indication: BREAST CANCER
     Route: 041
     Dates: start: 20150902, end: 20150909
  4. HYPNOTICS AND SEDATIVES ANTIANXIETICS [Concomitant]
  5. FEC [Suspect]
     Active Substance: CYCLOPHOSPHAMIDE\EPIRUBICIN HYDROCHLORIDE\FLUOROURACIL
     Indication: BREAST CANCER
     Dosage: UNKNOWN
     Route: 041
     Dates: start: 20120731, end: 2012
  6. BROTIZOLAM [Concomitant]
     Active Substance: BROTIZOLAM
  7. MOHRUS TAPE [Concomitant]
     Active Substance: KETOPROFEN
  8. LOXOPROFEN [Concomitant]
     Active Substance: LOXOPROFEN

REACTIONS (3)
  - Cardiac failure [Fatal]
  - Aspartate aminotransferase increased [Not Recovered/Not Resolved]
  - Alanine aminotransferase increased [Not Recovered/Not Resolved]

NARRATIVE: CASE EVENT DATE: 20150909
